FAERS Safety Report 10500428 (Version 1)
Quarter: 2014Q4

REPORT INFORMATION
  Report Type: Spontaneous
  Country: US (occurrence: US)
  Receive Date: 20141006
  Receipt Date: 20141006
  Transmission Date: 20150528
  Serious: No
  Sender: FDA-Public Use
  Company Number: US-AMGEN INC.-USASP2014047126

PATIENT
  Age: 89 Year
  Sex: Female

DRUGS (8)
  1. NEXIUM [Concomitant]
     Active Substance: ESOMEPRAZOLE MAGNESIUM
  2. LOVASTATIN. [Concomitant]
     Active Substance: LOVASTATIN
  3. SYNTHROID [Concomitant]
     Active Substance: LEVOTHYROXINE SODIUM
  4. HYDROCHLOROTHIAZIDE. [Concomitant]
     Active Substance: HYDROCHLOROTHIAZIDE
  5. TRAMADOL [Concomitant]
     Active Substance: TRAMADOL
  6. ELAVIL [Concomitant]
     Active Substance: AMITRIPTYLINE HYDROCHLORIDE
  7. PROLIA [Suspect]
     Active Substance: DENOSUMAB
     Indication: OSTEOPOROSIS POSTMENOPAUSAL
     Dosage: UNK
     Route: 065
     Dates: start: 20140430
  8. METOPROLOL [Concomitant]
     Active Substance: METOPROLOL

REACTIONS (14)
  - Skin lesion [Not Recovered/Not Resolved]
  - Scab [Not Recovered/Not Resolved]
  - Contusion [Unknown]
  - Pain [Unknown]
  - Skin exfoliation [Not Recovered/Not Resolved]
  - Feeling abnormal [Unknown]
  - Laceration [Not Recovered/Not Resolved]
  - Dermatitis [Not Recovered/Not Resolved]
  - Erythema [Not Recovered/Not Resolved]
  - Skin disorder [Not Recovered/Not Resolved]
  - Anxiety [Unknown]
  - Frustration [Unknown]
  - Skin haemorrhage [Not Recovered/Not Resolved]
  - Impetigo [Recovering/Resolving]

NARRATIVE: CASE EVENT DATE: 201405
